FAERS Safety Report 22273137 (Version 2)
Quarter: 2023Q2

REPORT INFORMATION
  Report Type: Spontaneous
  Country: AU (occurrence: None)
  Receive Date: 20230502
  Receipt Date: 20230509
  Transmission Date: 20230721
  Serious: Yes (Other)
  Sender: FDA-Public Use
  Company Number: 2023A099394

PATIENT
  Age: 52 Year
  Sex: Female

DRUGS (12)
  1. ESOMEPRAZOLE [Suspect]
     Active Substance: ESOMEPRAZOLE
  2. ROSUVASTATIN [Suspect]
     Active Substance: ROSUVASTATIN
     Indication: Product used for unknown indication
  3. ANASTROZOLE [Suspect]
     Active Substance: ANASTROZOLE
  4. NOVORAPID [Suspect]
     Active Substance: INSULIN ASPART
  5. INSULIN GLARGINE [Suspect]
     Active Substance: INSULIN GLARGINE
  6. PHENERGAN [Suspect]
     Active Substance: PROMETHAZINE HYDROCHLORIDE
  7. ALBUTEROL [Suspect]
     Active Substance: ALBUTEROL
  8. APIXABAN [Suspect]
     Active Substance: APIXABAN
  9. FAMOTIDINE [Suspect]
     Active Substance: FAMOTIDINE
  10. LORATADINE [Suspect]
     Active Substance: LORATADINE
  11. METFORMIN HYDROCHLORIDE [Suspect]
     Active Substance: METFORMIN HYDROCHLORIDE
  12. MONTELUKAST [Suspect]
     Active Substance: MONTELUKAST SODIUM

REACTIONS (12)
  - Respiratory failure [Unknown]
  - Anaphylactic reaction [Unknown]
  - COVID-19 [Unknown]
  - Drug intolerance [Unknown]
  - Dyspnoea [Unknown]
  - Mouth haemorrhage [Unknown]
  - Obstructive airways disorder [Unknown]
  - Pharyngeal swelling [Unknown]
  - Pneumonia [Unknown]
  - Swollen tongue [Unknown]
  - Upper respiratory tract infection [Unknown]
  - Urticaria [Unknown]
